FAERS Safety Report 21514631 (Version 2)
Quarter: 2022Q4

REPORT INFORMATION
  Report Type: Spontaneous
  Country: US (occurrence: US)
  Receive Date: 20221027
  Receipt Date: 20221101
  Transmission Date: 20230113
  Serious: No
  Sender: FDA-Public Use
  Company Number: US-SANOFI-01329919

PATIENT
  Age: 50 Year
  Sex: Female

DRUGS (2)
  1. DUPIXENT [Suspect]
     Active Substance: DUPILUMAB
     Indication: Psoriasis
     Dosage: UNK
     Dates: start: 202209, end: 202209
  2. DUPIXENT [Suspect]
     Active Substance: DUPILUMAB
     Dosage: 300 MG, QOW
     Dates: end: 20221016

REACTIONS (6)
  - Rash [Recovered/Resolved]
  - Hypoaesthesia [Unknown]
  - Peripheral swelling [Unknown]
  - Joint lock [Unknown]
  - Gait disturbance [Unknown]
  - Product use in unapproved indication [Unknown]
